FAERS Safety Report 4349196-0 (Version None)
Quarter: 2004Q2

REPORT INFORMATION
  Report Type: 
  Country: None (occurrence: None)
  Receive Date: 20040428
  Receipt Date: 20040224
  Transmission Date: 20050107
  Serious: Yes (Other)
  Sender: FDA-Public Use
  Company Number: PHEH2004US02451

PATIENT
  Sex: Female

DRUGS (2)
  1. MIACALCIN [Suspect]
     Dosage: UNK, QD
  2. FASLODEX [Concomitant]

REACTIONS (2)
  - BREAST CANCER [None]
  - LUNG NEOPLASM MALIGNANT [None]
